FAERS Safety Report 23411146 (Version 3)
Quarter: 2024Q1

REPORT INFORMATION
  Report Type: Spontaneous
  Country: FR (occurrence: FR)
  Receive Date: 20240117
  Receipt Date: 20240313
  Transmission Date: 20240410
  Serious: Yes (Hospitalization)
  Sender: FDA-Public Use
  Company Number: None

PATIENT
  Age: 60 Year
  Sex: Female

DRUGS (8)
  1. IBUPROFEN [Interacting]
     Active Substance: IBUPROFEN
     Indication: Pain
     Dosage: 3 DOSAGE FORM, QD
     Route: 048
     Dates: start: 20230323, end: 20230409
  2. CANDESARTAN [Interacting]
     Active Substance: CANDESARTAN
     Indication: Hypertension
     Dosage: 16 MILLIGRAM, QD
     Route: 048
     Dates: start: 2013, end: 20230408
  3. HYDROCHLOROTHIAZIDE [Suspect]
     Active Substance: HYDROCHLOROTHIAZIDE
     Indication: Hypertension
     Dosage: 12.5 MILLIGRAM, QD
     Route: 048
     Dates: start: 2013, end: 20230408
  4. PRISTINAMYCIN [Concomitant]
     Active Substance: PRISTINAMYCIN
     Indication: Infection
     Dosage: UNK
     Route: 048
     Dates: start: 20230328, end: 20230331
  5. ATORVASTATIN [Concomitant]
     Active Substance: ATORVASTATIN
     Dosage: UNK
     Route: 048
  6. AMOXICILLIN [Concomitant]
     Active Substance: AMOXICILLIN
     Indication: Infection
     Dosage: UNK
     Route: 048
     Dates: start: 20230325, end: 20230327
  7. CIPROFLOXACIN [Concomitant]
     Active Substance: CIPROFLOXACIN
     Indication: Infection
     Dosage: UNK
     Route: 048
     Dates: start: 20230405, end: 20230409
  8. LERCANIDIPINE HYDROCHLORIDE [Concomitant]
     Active Substance: LERCANIDIPINE HYDROCHLORIDE
     Dosage: UNK
     Route: 048

REACTIONS (3)
  - Acute kidney injury [Recovered/Resolved]
  - Hyponatraemia [Unknown]
  - Drug interaction [Recovered/Resolved]

NARRATIVE: CASE EVENT DATE: 20230409
